FAERS Safety Report 9127322 (Version 1)
Quarter: 2013Q1

REPORT INFORMATION
  Report Type: Spontaneous
  Country: US (occurrence: US)
  Receive Date: 20130228
  Receipt Date: 20130228
  Transmission Date: 20140127
  Serious: No
  Sender: FDA-Public Use
  Company Number: US-GLAXOSMITHKLINE-A0968832A

PATIENT
  Age: 21 Year
  Sex: Male

DRUGS (2)
  1. LAMICTAL [Suspect]
     Indication: BIPOLAR DISORDER
     Dosage: 100MG PER DAY
     Route: 065
     Dates: start: 20120106
  2. NO CONCURRENT MEDICATION [Concomitant]

REACTIONS (3)
  - Rash pustular [Unknown]
  - Acne [Unknown]
  - Headache [Unknown]
